FAERS Safety Report 11365428 (Version 1)
Quarter: 2015Q3

REPORT INFORMATION
  Report Type: Spontaneous
  Country: US (occurrence: US)
  Receive Date: 20150811
  Receipt Date: 20150811
  Transmission Date: 20151125
  Serious: No
  Sender: FDA-Public Use
  Company Number: US-BAYER-2015-391611

PATIENT
  Sex: Female

DRUGS (1)
  1. CLIMARA [Suspect]
     Active Substance: ESTRADIOL
     Indication: VULVOVAGINAL DRYNESS
     Dosage: UNK
     Route: 062
     Dates: start: 201308

REACTIONS (4)
  - Product use issue [None]
  - Skin discomfort [None]
  - Headache [None]
  - Application site irritation [None]

NARRATIVE: CASE EVENT DATE: 2015
